FAERS Safety Report 15307528 (Version 2)
Quarter: 2018Q3

REPORT INFORMATION
  Report Type: Report from Study
  Country: DE (occurrence: DE)
  Receive Date: 20180822
  Receipt Date: 20180921
  Transmission Date: 20181010
  Serious: Yes (Death)
  Sender: FDA-Public Use
  Company Number: PHHY2018DE075190

PATIENT
  Sex: Male
  Weight: 86 kg

DRUGS (3)
  1. EXJADE [Suspect]
     Active Substance: DEFERASIROX
     Indication: MYELODYSPLASTIC SYNDROME
     Dosage: 8 MG/KG, QD (360 MG, 2 TABLET)
     Route: 065
     Dates: start: 20170426
  2. VIDAZA [Concomitant]
     Active Substance: AZACITIDINE
     Indication: REFRACTORY CYTOPENIA WITH MULTILINEAGE DYSPLASIA
     Dosage: 50 MG, (DAY 1 TO 4)
     Route: 065
     Dates: start: 20171106
  3. VIDAZA [Concomitant]
     Active Substance: AZACITIDINE
     Indication: MYELODYSPLASTIC SYNDROME
     Dosage: 75 MG, (DAY 1 TO 4)
     Route: 065
     Dates: start: 20170511, end: 20171110

REACTIONS (1)
  - Death [Fatal]

NARRATIVE: CASE EVENT DATE: 20180426
